FAERS Safety Report 14538052 (Version 1)
Quarter: 2018Q1

REPORT INFORMATION
  Report Type: Spontaneous
  Country: US (occurrence: US)
  Receive Date: 20180216
  Receipt Date: 20180216
  Transmission Date: 20180509
  Serious: No
  Sender: FDA-Public Use
  Company Number: US-ELI_LILLY_AND_COMPANY-US201802004953

PATIENT
  Sex: Male

DRUGS (1)
  1. HUMALOG [Suspect]
     Active Substance: INSULIN LISPRO
     Indication: TYPE 2 DIABETES MELLITUS
     Dosage: 1 UNIT FOR EVERY 10 GRAMS OF CARBS AND THEN A 1 UNIT CORRECTION FOR EVERY 20 ABOVE 120MG/DL, PRN
     Route: 058

REACTIONS (2)
  - Blood glucose fluctuation [Recovered/Resolved]
  - Blood glucose increased [Not Recovered/Not Resolved]
